FAERS Safety Report 9044018 (Version 1)
Quarter: 2013Q1

REPORT INFORMATION
  Report Type: Report from Study
  Country: US (occurrence: US)
  Receive Date: 20130130
  Receipt Date: 20130130
  Transmission Date: 20140127
  Serious: No
  Sender: FDA-Public Use
  Company Number: US-ABBOTT-12P-163-0946610-00

PATIENT
  Sex: Male
  Weight: 95.34 kg

DRUGS (7)
  1. HUMIRA 40 MG/ 0.8 ML PRE-FILLED SYRINGE [Suspect]
     Indication: RHEUMATOID ARTHRITIS
     Route: 058
     Dates: start: 2006
  2. METHOTREXATE [Concomitant]
     Indication: RHEUMATOID ARTHRITIS
  3. AVODART [Concomitant]
     Indication: PROSTATIC DISORDER
  4. LANSOPRAZOLE [Concomitant]
     Indication: GASTROOESOPHAGEAL REFLUX DISEASE
  5. TRIAMTERENE/HCTZ [Concomitant]
     Indication: HYPERTENSION
  6. AMBIEN [Concomitant]
     Indication: SLEEP DISORDER
  7. ALBUTEROL [Concomitant]
     Indication: ASTHMA

REACTIONS (4)
  - Cough [Recovering/Resolving]
  - Bronchitis [Recovering/Resolving]
  - Hypersensitivity [Recovering/Resolving]
  - Arthritis [Recovering/Resolving]
